FAERS Safety Report 9965837 (Version 1)
Quarter: 2014Q1

REPORT INFORMATION
  Report Type: Report from Study
  Country: US (occurrence: US)
  Receive Date: 20140305
  Receipt Date: 20140305
  Transmission Date: 20141002
  Serious: No
  Sender: FDA-Public Use
  Company Number: US-ABBVIE-13P-163-1123921-00

PATIENT
  Sex: Female

DRUGS (10)
  1. HUMIRA [Suspect]
     Indication: CROHN^S DISEASE
     Dates: start: 20130510
  2. SINGULAIR [Concomitant]
     Indication: HYPERSENSITIVITY
  3. SINGULAIR [Concomitant]
     Indication: ASTHMA
  4. ENTOCORT [Concomitant]
     Indication: CROHN^S DISEASE
     Dates: end: 20130721
  5. ENTOCORT [Concomitant]
     Dates: start: 20130721
  6. FINACEA [Concomitant]
     Indication: ROSACEA
  7. CALCIUM +D [Concomitant]
     Indication: PRODUCT USED FOR UNKNOWN INDICATION
  8. MULTIVITAMIN [Concomitant]
     Indication: PRODUCT USED FOR UNKNOWN INDICATION
     Dosage: DAILY
  9. GUAIFENESIN [Concomitant]
     Indication: HYPERSENSITIVITY
  10. GUAIFENESIN [Concomitant]
     Indication: ASTHMA

REACTIONS (1)
  - Therapeutic response unexpected [Unknown]
